FAERS Safety Report 8600784-2 (Version None)
Quarter: 2012Q3

REPORT INFORMATION
  Report Type: 
  Country: None (occurrence: None)
  Receive Date: 20120806
  Receipt Date: 20120727
  Transmission Date: 20120928
  Serious: Yes (Hospitalization)
  Sender: FDA-Public Use
  Company Number: 2012000191

PATIENT
  Age: 68 Year
  Sex: Male

DRUGS (8)
  1. TEMERIT (NEBIVOLOL HYDROCHLORIDE) [Concomitant]
  2. PLAVIX [Concomitant]
  3. AZOPT [Concomitant]
  4. FLECAINIDE ACETATE [Suspect]
     Indication: PRODUCT USED FOR UNKNOWN INDICATION
     Dosage: 200 MG, QD
     Dates: start: 20110601, end: 20110613
  5. CRESTOR [Concomitant]
  6. KARDEGIC (ACETYLSALLCYLATE LYSINE) [Concomitant]
  7. ACEON [Suspect]
     Indication: PRODUCT USED FOR UNKNOWN INDICATION
     Dosage: , ORAL
     Route: 048
     Dates: start: 20110601
  8. XALATAN [Suspect]
     Indication: GLAUCOMA
     Dosage: 1 DF, QD, OPHTHALMIC
     Route: 047

REACTIONS (1)
  - TACHYCARDIA [None]
